FAERS Safety Report 6639083-7 (Version None)
Quarter: 2010Q1

REPORT INFORMATION
  Report Type: 
  Country: None (occurrence: None)
  Receive Date: 20100317
  Receipt Date: 20100308
  Transmission Date: 20100710
  Serious: Yes (Hospitalization)
  Sender: FDA-Public Use
  Company Number: JP-ASTRAZENECA-2010SE06076

PATIENT
  Age: 28191 Day
  Sex: Male

DRUGS (10)
  1. CASODEX [Suspect]
     Indication: PROSTATE CANCER
     Route: 048
     Dates: start: 20080129
  2. PACLITAXEL [Suspect]
     Indication: GASTRIC CANCER RECURRENT
     Dosage: 80MG/BODY, 2-WEEK DISCONTINUATION FOLLOWING 3-WEEK ADMINISTRATION
     Route: 041
     Dates: start: 20100115
  3. ASPIRIN [Concomitant]
     Indication: ANGINA PECTORIS
     Route: 048
     Dates: start: 20050805
  4. MAGNESIUM OXIDE [Concomitant]
     Indication: CONSTIPATION
     Route: 048
     Dates: start: 20060412
  5. BERIZYM [Concomitant]
     Indication: GASTRECTOMY
     Route: 048
     Dates: start: 20060412
  6. MECOBALAMIN [Concomitant]
     Indication: VITAMIN B12 DEFICIENCY
     Route: 048
     Dates: start: 20070316
  7. HALTHROW [Concomitant]
     Indication: DYSURIA
     Route: 048
     Dates: start: 20070706
  8. ARTIST [Concomitant]
     Indication: HYPERTENSION
     Route: 048
     Dates: start: 20070727
  9. ZOLADEX [Concomitant]
     Indication: PROSTATE CANCER
     Route: 058
     Dates: start: 20080212
  10. TS-1 [Concomitant]
     Indication: PROSTATE CANCER
     Dosage: 80MG/BODY, 1-WEEK DISCONTINUATION FOLLOWING 2-WEEK ADMINISTRATION
     Route: 048
     Dates: start: 20081003, end: 20091127

REACTIONS (1)
  - FEBRILE NEUTROPENIA [None]
